FAERS Safety Report 4811318-2 (Version None)
Quarter: 2005Q4

REPORT INFORMATION
  Report Type: 
  Country: None (occurrence: None)
  Receive Date: 20051026
  Receipt Date: 20051026
  Transmission Date: 20060501
  Serious: Yes (Life-Threatening)
  Sender: FDA-Public Use
  Company Number: None

PATIENT
  Age: 54 Year
  Sex: Male
  Weight: 119 kg

DRUGS (4)
  1. COPAXONE [Suspect]
     Indication: MULTIPLE SCLEROSIS
     Dosage: 20MG DAILY SQ
     Route: 058
  2. CELEBREX [Suspect]
     Indication: PAIN
     Dosage: 200MG DAILY PO
     Route: 048
  3. DITROPAN XL [Concomitant]
  4. LOTENSIN [Concomitant]

REACTIONS (6)
  - DEEP VEIN THROMBOSIS [None]
  - DIASTOLIC DYSFUNCTION [None]
  - ECHOCARDIOGRAM ABNORMAL [None]
  - FACTOR V LEIDEN MUTATION [None]
  - PULMONARY ARTERIAL PRESSURE ABNORMAL [None]
  - PULMONARY EMBOLISM [None]
